FAERS Safety Report 4438444-4 (Version None)
Quarter: 2004Q3

REPORT INFORMATION
  Report Type: 
  Country: None (occurrence: None)
  Receive Date: 20040831
  Receipt Date: 20040825
  Transmission Date: 20050211
  Serious: Yes (Death, Hospitalization, Other)
  Sender: FDA-Public Use
  Company Number: PHBS2004US11280

PATIENT
  Age: 35 Year
  Sex: Male

DRUGS (3)
  1. CYCLOSPORINE [Suspect]
     Indication: RENAL TRANSPLANT
     Route: 065
  2. PREDNISONE [Concomitant]
     Dosage: 5 MG/DAY
  3. PREDNISONE [Concomitant]
     Dosage: 80 MG/DAY

REACTIONS (25)
  - BLINDNESS [None]
  - CARDIAC FAILURE CONGESTIVE [None]
  - CARDIAC MURMUR [None]
  - CARDIAC VALVE VEGETATION [None]
  - CARDIOMEGALY [None]
  - DILATATION VENTRICULAR [None]
  - DISSEMINATED INTRAVASCULAR COAGULATION [None]
  - ENDOPHTHALMITIS [None]
  - EYE PAIN [None]
  - EYE SWELLING [None]
  - FUNGAEMIA [None]
  - FUNGAL ENDOCARDITIS [None]
  - GRAFT DYSFUNCTION [None]
  - HAEMODIALYSIS [None]
  - HEART VALVE INSUFFICIENCY [None]
  - HEART VALVE REPLACEMENT [None]
  - HYPOTENSION [None]
  - KIDNEY TRANSPLANT REJECTION [None]
  - PERIORBITAL OEDEMA [None]
  - PYREXIA [None]
  - SCLERAL HAEMORRHAGE [None]
  - SPLENIC ABSCESS [None]
  - SPLENOMEGALY [None]
  - VITRECTOMY [None]
  - VITREOUS OPACITIES [None]
